FAERS Safety Report 8070000-1 (Version None)
Quarter: 2012Q1

REPORT INFORMATION
  Report Type: 
  Country: None (occurrence: None)
  Receive Date: 20120125
  Receipt Date: 20120118
  Transmission Date: 20120608
  Serious: Yes (Hospitalization, Other)
  Sender: FDA-Public Use
  Company Number: PL-ABBOTT-12P-129-0888710-00

PATIENT
  Age: 31 Year
  Sex: Male

DRUGS (4)
  1. HUMIRA [Suspect]
     Route: 058
     Dates: start: 20090601, end: 20090601
  2. HUMIRA [Suspect]
     Route: 058
     Dates: start: 20090601, end: 20091101
  3. HUMIRA [Suspect]
     Route: 058
     Dates: start: 20091101, end: 20100101
  4. HUMIRA [Suspect]
     Indication: CROHN'S DISEASE
     Route: 058
     Dates: start: 20090519, end: 20090519

REACTIONS (6)
  - ABSCESS INTESTINAL [None]
  - PSOAS ABSCESS [None]
  - GASTROINTESTINAL INFLAMMATION [None]
  - MESENTERITIS [None]
  - MALAISE [None]
  - DRUG EFFECT DECREASED [None]
